FAERS Safety Report 11484282 (Version 1)
Quarter: 2015Q3

REPORT INFORMATION
  Report Type: Spontaneous
  Country: US (occurrence: US)
  Receive Date: 20150903
  Receipt Date: 20150903
  Transmission Date: 20151125
  Serious: No
  Sender: FDA-Public Use
  Company Number: US-ELI_LILLY_AND_COMPANY-US201206009504

PATIENT
  Age: 44 Year

DRUGS (3)
  1. CYMBALTA [Suspect]
     Active Substance: DULOXETINE HYDROCHLORIDE
     Dosage: 60 MG, QD
  2. TOPAMAX [Concomitant]
     Active Substance: TOPIRAMATE
  3. CYMBALTA [Suspect]
     Active Substance: DULOXETINE HYDROCHLORIDE
     Dosage: 30 MG, QD

REACTIONS (12)
  - Hypoaesthesia oral [Unknown]
  - Toothache [Unknown]
  - Oral discomfort [Unknown]
  - Throat irritation [Unknown]
  - Tongue coated [Unknown]
  - Gingival pain [Unknown]
  - Glossodynia [Unknown]
  - Stomatitis [Unknown]
  - Oral pain [Unknown]
  - Dry mouth [Unknown]
  - Chest discomfort [Unknown]
  - Paraesthesia oral [Unknown]
